FAERS Safety Report 14119814 (Version 1)
Quarter: 2017Q4

REPORT INFORMATION
  Report Type: Spontaneous
  Country: GB (occurrence: GB)
  Receive Date: 20171024
  Receipt Date: 20171024
  Transmission Date: 20180321
  Serious: Yes (Other)
  Sender: FDA-Public Use
  Company Number: GB-DEXPHARM-20171386

PATIENT
  Age: 60 Year
  Sex: Female
  Weight: 55.33 kg

DRUGS (3)
  1. PENTASA [Concomitant]
     Active Substance: MESALAMINE
  2. PREDNISOLONE. [Concomitant]
     Active Substance: PREDNISOLONE
  3. OMEPRAZOLE. [Suspect]
     Active Substance: OMEPRAZOLE
     Indication: GASTRIC ULCER
     Dosage: DAILY DOSE: 20 MG MILLGRAM(S) EVERY DAYS
     Route: 048
     Dates: start: 20170917, end: 20171001

REACTIONS (7)
  - Cognitive disorder [Not Recovered/Not Resolved]
  - Flatulence [Not Recovered/Not Resolved]
  - Disorientation [Not Recovered/Not Resolved]
  - Memory impairment [Not Recovered/Not Resolved]
  - Sleep disorder [Not Recovered/Not Resolved]
  - Feeling abnormal [Not Recovered/Not Resolved]
  - Neurological examination abnormal [Not Recovered/Not Resolved]

NARRATIVE: CASE EVENT DATE: 20170919
